FAERS Safety Report 8556052 (Version 3)
Quarter: 2012Q4

REPORT INFORMATION
  Report Type: 
  Country: US (occurrence: US)
  Receive Date: 20120510
  Receipt Date: 20121119
  Transmission Date: 20130627
  Serious: Yes (Life-Threatening, Hospitalization, Other)
  Sender: FDA-Public Use
  Company Number: US-BAYER-2012-045175

PATIENT
  Age: 52 Year
  Sex: Female
  Weight: 104.31 kg

DRUGS (23)
  1. YAZ [Suspect]
     Indication: PREMENSTRUAL DYSPHORIC DISORDER
     Dosage: UNK
     Dates: start: 200606, end: 200609
  2. YAZ [Suspect]
     Indication: MENSTRUAL CYCLE MANAGEMENT
  3. YASMIN [Suspect]
  4. VICODIN [Concomitant]
     Dosage: 5 mg, 1 to 2 every 6 hours as needed; dispense 15
     Route: 048
  5. ONE A DAY [Concomitant]
     Dosage: Daily
  6. COMBIVENT [Concomitant]
     Dosage: [2] puffs Q 6 [hours]
  7. NASONEX [Concomitant]
     Dosage: 2 sqts (interpreted as squirts)
  8. FLOVENT [Concomitant]
     Dosage: [2] puffs
  9. PROVENTIL [Concomitant]
     Dosage: [2] puffs Q8 [hours]
  10. NASOCORT [Concomitant]
     Dosage: [2] sqts QD Ea (ieach) nostril
     Route: 045
  11. NITROSTAT [Concomitant]
     Route: 060
  12. XANAX [Concomitant]
     Indication: ANXIETY
     Dosage: 1 mg q (ievery) 6 [hours] prn (as needed)
  13. LASIX [Concomitant]
     Dosage: 20 mg, daily
     Route: 042
  14. SOLU-MEDROL [Concomitant]
     Indication: ASTHMA
     Route: 042
  15. MICRO-K [Concomitant]
     Indication: OEDEMA PERIPHERAL
     Dosage: 1 DF, BID
  16. COLACE [Concomitant]
  17. FOSAMAX [Concomitant]
  18. OS-CAL + D [CALCIUM CARBONATE,COLECALCIFEROL] [Concomitant]
  19. PREVACID [Concomitant]
  20. CLEOCIN [Concomitant]
     Dosage: UNK
  21. ROBITUSSIN EXPECTORANT [ACETYLCYSTEINE] [Concomitant]
     Indication: COUGH
  22. TOPROL [Concomitant]
     Indication: BLOOD PRESSURE HIGH
  23. LACTULOSE [Concomitant]
     Indication: CONSTIPATION

REACTIONS (8)
  - Pulmonary embolism [Recovered/Resolved]
  - Deep vein thrombosis [None]
  - Injury [Recovered/Resolved]
  - Emotional distress [None]
  - Depression [None]
  - Fear of death [None]
  - Nervousness [None]
  - Dyspnoea [Recovered/Resolved]
